FAERS Safety Report 6713020-9 (Version None)
Quarter: 2010Q2

REPORT INFORMATION
  Report Type: 
  Country: None (occurrence: None)
  Receive Date: 20100505
  Receipt Date: 20100505
  Transmission Date: 20101027
  Serious: No
  Sender: FDA-Public Use
  Company Number: None

PATIENT
  Age: 30 Year
  Sex: Male

DRUGS (1)
  1. DIVALPROEX SODIUM [Suspect]
     Indication: BIPOLAR I DISORDER
     Dosage: 750 MG PM PO
     Route: 048
     Dates: start: 20100127, end: 20100318

REACTIONS (1)
  - STEVENS-JOHNSON SYNDROME [None]
